FAERS Safety Report 10010097 (Version 3)
Quarter: 2014Q2

REPORT INFORMATION
  Report Type: Spontaneous
  Country: US (occurrence: US)
  Receive Date: 20140313
  Receipt Date: 20140501
  Transmission Date: 20141212
  Serious: No
  Sender: FDA-Public Use
  Company Number: US-RB-064445-14

PATIENT
  Sex: Female

DRUGS (2)
  1. BUPRENORPHINE UNSPECIFIED [Suspect]
     Indication: PRODUCT USED FOR UNKNOWN INDICATION
     Route: 065
     Dates: start: 20120729
  2. BUPRENORPHINE UNSPECIFIED [Suspect]
     Dosage: CUTTING 2 MG UNIT DOSE TO MAKE 3 MG (TAKES ONE AND A HALF TABLET)
     Route: 065

REACTIONS (2)
  - Maternal exposure during pregnancy [Unknown]
  - Wrong technique in drug usage process [Not Recovered/Not Resolved]
